FAERS Safety Report 17893555 (Version 1)
Quarter: 2020Q2

REPORT INFORMATION
  Report Type: Spontaneous
  Country: ES (occurrence: ES)
  Receive Date: 20200615
  Receipt Date: 20200615
  Transmission Date: 20200714
  Serious: Yes (Hospitalization)
  Sender: FDA-Public Use
  Company Number: ES-CADILA HEALTHCARE LIMITED-ES-ZYDUS-027620

PATIENT

DRUGS (9)
  1. ASPIRIN. [Suspect]
     Active Substance: ASPIRIN
     Indication: ISCHAEMIC CARDIOMYOPATHY
     Dosage: 100 MILLIGRAM,(INTERVAL :1 DAYS)
     Route: 048
     Dates: start: 2010
  2. EZETIMIBE,SIMVASTATIN [Concomitant]
     Active Substance: EZETIMIBE\SIMVASTATIN
     Dosage: 1 DOSAGE FORM,(INTERVAL :1 DAYS)
     Route: 048
  3. INSULIN DETEMIR [Concomitant]
     Active Substance: INSULIN DETEMIR
     Dosage: 20 INTERNATIONAL UNIT,(INTERVAL :1 DAYS)
     Route: 058
  4. PANTOPRAZOLE [Concomitant]
     Active Substance: PANTOPRAZOLE
     Dosage: 40 MILLIGRAM,(INTERVAL :1 DAYS)
     Route: 048
  5. METOPROLOL TARTRATE. [Concomitant]
     Active Substance: METOPROLOL TARTRATE
     Dosage: 100 MILLIGRAM,(INTERVAL :1 DAYS)
     Route: 048
  6. CLOPIDOGREL [Suspect]
     Active Substance: CLOPIDOGREL BISULFATE
     Indication: ISCHAEMIC CARDIOMYOPATHY
     Dosage: 75 MILLIGRAM,(INTERVAL :1 DAYS)
     Route: 048
     Dates: start: 2010, end: 20160425
  7. ENOXAPARIN [Suspect]
     Active Substance: ENOXAPARIN
     Indication: PRODUCT USED FOR UNKNOWN INDICATION
     Dosage: 40 MILLIGRAM,(INTERVAL :1 DAYS)
     Route: 058
     Dates: start: 20160422, end: 20160425
  8. AMITRIPTYLINE [Concomitant]
     Active Substance: AMITRIPTYLINE
     Dosage: 10 MILLIGRAM,(INTERVAL :1 DAYS)
     Route: 048
  9. CALCIUM ACETATE W/ MAGNESIUM CARBONATE [Concomitant]
     Dosage: 2 DOSAGE FORM,(INTERVAL :1 DAYS)
     Route: 048

REACTIONS (3)
  - Lower gastrointestinal haemorrhage [Recovered/Resolved]
  - Syncope [Recovered/Resolved]
  - Hypotension [Recovered/Resolved]

NARRATIVE: CASE EVENT DATE: 20160425
